FAERS Safety Report 18961855 (Version 1)
Quarter: 2021Q1

REPORT INFORMATION
  Report Type: Spontaneous
  Country: CN (occurrence: CN)
  Receive Date: 20210302
  Receipt Date: 20210302
  Transmission Date: 20210420
  Serious: Yes (Life-Threatening)
  Sender: FDA-Public Use
  Company Number: CN-BAXTER-2021BAX003917

PATIENT
  Age: 55 Year
  Sex: Female
  Weight: 78 kg

DRUGS (8)
  1. 0.9% SODIUM CHLORIDE INJECTION [Suspect]
     Active Substance: SODIUM CHLORIDE
     Indication: MEDICATION DILUTION
     Dosage: 1?2 CYCLES OF CHEMOTHERAPY; 0.9% SODIUM CHLORIDE INJECTION + CYCLOPHOSPHAMIDE FOR INJECTION
     Route: 041
  2. 5% GLUCOSE  INJECTION [Suspect]
     Active Substance: DEXTROSE
     Dosage: THIRD CYCLE OF CHEMOTHERAPY; 5% GLUCOSE 100ML + PIRARUBICIN HYDROCHLORIDE 100 MG; D1
     Route: 041
     Dates: start: 20210207, end: 20210207
  3. PIRARUBICIN HYDROCHLORIDE [Suspect]
     Active Substance: PIRARUBICIN HYDROCHLORIDE
     Indication: BREAST CANCER FEMALE
     Dosage: 1 TO 2 CYCLES OF CHEMOTHERAPY; 5% GLUCOSE INJECTION + PIRARUBICIN HYDROCHLORIDE FOR INJECTION
     Route: 041
  4. ENDOXAN [Suspect]
     Active Substance: CYCLOPHOSPHAMIDE
     Dosage: THIRD CYCLE OF CHEMOTHERAPY; 0.9% SODIUM CHLORIDE 100ML + CYCLOPHOSPHAMIDE 1000 MG; D1
     Route: 041
     Dates: start: 20210207, end: 20210207
  5. PIRARUBICIN HYDROCHLORIDE [Suspect]
     Active Substance: PIRARUBICIN HYDROCHLORIDE
     Dosage: THIRD CYCLE OF CHEMOTHERAPY; 5% GLUCOSE 100ML + PIRARUBICIN HYDROCHLORIDE 100 MG; D1
     Route: 041
     Dates: start: 20210207, end: 20210207
  6. ENDOXAN [Suspect]
     Active Substance: CYCLOPHOSPHAMIDE
     Indication: BREAST CANCER FEMALE
     Dosage: 1?2 CYCLES OF CHEMOTHERAPY; 0.9% SODIUM CHLORIDE INJECTION + CYCLOPHOSPHAMIDE FOR INJECTION
     Route: 041
  7. 0.9% SODIUM CHLORIDE INJECTION [Suspect]
     Active Substance: SODIUM CHLORIDE
     Dosage: THIRD CYCLE OF CHEMOTHERAPY; 0.9% SODIUM CHLORIDE 100ML + CYCLOPHOSPHAMIDE 1000 MG; D1
     Route: 041
     Dates: start: 20210207, end: 20210207
  8. 5% GLUCOSE  INJECTION [Suspect]
     Active Substance: DEXTROSE
     Indication: MEDICATION DILUTION
     Dosage: 1?2 CYCLES OF CHEMOTHERAPY; 5% GLUCOSE INJECTION + PIRARUBICIN HYDROCHLORIDE FOR INJECTION
     Route: 041

REACTIONS (1)
  - Myelosuppression [Recovered/Resolved]

NARRATIVE: CASE EVENT DATE: 20210215
